FAERS Safety Report 9760315 (Version 1)
Quarter: 2013Q4

REPORT INFORMATION
  Report Type: Spontaneous
  Country: US (occurrence: US)
  Receive Date: 20131216
  Receipt Date: 20131216
  Transmission Date: 20140711
  Serious: No
  Sender: FDA-Public Use
  Company Number: US-GILEAD-2010-0029236

PATIENT
  Age: 63 Year
  Sex: Female

DRUGS (14)
  1. LETAIRIS [Suspect]
     Indication: PULMONARY ARTERIAL HYPERTENSION
     Route: 048
     Dates: start: 20100423, end: 20100430
  2. REVATIO [Concomitant]
  3. WARFARIN [Concomitant]
  4. TRAMADOL [Concomitant]
  5. ATENOLOL [Concomitant]
  6. ALLOPURINOL [Concomitant]
  7. SIMVASTATIN [Concomitant]
  8. POTASSIUM [Concomitant]
  9. METFORMIN [Concomitant]
  10. DILTIAZEM [Concomitant]
  11. MAGNESIUM OXIDE [Concomitant]
  12. TORSEMIDE [Concomitant]
  13. LISINOPRIL [Concomitant]
  14. DIOVAN [Concomitant]

REACTIONS (4)
  - Lethargy [Recovered/Resolved]
  - Somnolence [Recovered/Resolved]
  - Erythema [Recovered/Resolved]
  - Hot flush [Recovered/Resolved]
